FAERS Safety Report 13064755 (Version 1)
Quarter: 2016Q4

REPORT INFORMATION
  Report Type: Spontaneous
  Country: GB (occurrence: GB)
  Receive Date: 20161227
  Receipt Date: 20161227
  Transmission Date: 20170207
  Serious: Yes (Hospitalization, Disabling, Other)
  Sender: FDA-Public Use
  Company Number: GB-PFIZER INC-2016589300

PATIENT
  Age: 57 Year
  Sex: Male
  Weight: 61 kg

DRUGS (5)
  1. PREGABALIN. [Suspect]
     Active Substance: PREGABALIN
     Indication: NECK PAIN
     Dosage: 300 MG, 2X/DAY
     Route: 048
     Dates: start: 2012
  2. MST CONTINUS [Concomitant]
     Active Substance: MORPHINE SULFATE
     Dosage: 70 MG, 2X/DAY
  3. ORAMORPH [Concomitant]
     Active Substance: MORPHINE SULFATE
     Dosage: UNK
  4. GABAPENTIN. [Concomitant]
     Active Substance: GABAPENTIN
     Dosage: UNK
  5. AZITHROMYCIN DIHYDRATE. [Concomitant]
     Active Substance: AZITHROMYCIN DIHYDRATE
     Dosage: UNK

REACTIONS (10)
  - Gastrointestinal motility disorder [Unknown]
  - Procedural pain [Unknown]
  - Neuropathy peripheral [Unknown]
  - Pain [Unknown]
  - Respiratory muscle weakness [Unknown]
  - Dysphagia [Unknown]
  - Dropped head syndrome [Not Recovered/Not Resolved]
  - Muscular weakness [Unknown]
  - Spinal cord infection [Unknown]
  - Spinal deformity [Unknown]

NARRATIVE: CASE EVENT DATE: 2012
